FAERS Safety Report 18692243 (Version 1)
Quarter: 2021Q1

REPORT INFORMATION
  Report Type: Spontaneous
  Country: US (occurrence: US)
  Receive Date: 20210103
  Receipt Date: 20210103
  Transmission Date: 20210419
  Serious: No
  Sender: FDA-Public Use
  Company Number: US-AMAG PHARMACEUTICALS, INC.-AMAG202004079

PATIENT
  Age: 37 Year
  Sex: Female

DRUGS (2)
  1. PRENATAL GUMMIES [Concomitant]
     Route: 048
  2. MAKENA [Suspect]
     Active Substance: HYDROXYPROGESTERONE CAPROATE
     Indication: PREMATURE DELIVERY
     Dosage: PATIENT RECEIVED FIRST DOSE AT 14.1 WEEKS GA
     Route: 058

REACTIONS (1)
  - Inappropriate schedule of product administration [Unknown]
